FAERS Safety Report 12634641 (Version 2)
Quarter: 2016Q4

REPORT INFORMATION
  Report Type: Spontaneous
  Country: US (occurrence: US)
  Receive Date: 20160809
  Receipt Date: 20161221
  Transmission Date: 20170207
  Serious: Yes (Hospitalization, Other)
  Sender: FDA-Public Use
  Company Number: US-009507513-1608USA001880

PATIENT
  Age: 24 Year
  Sex: Female
  Weight: 90.25 kg

DRUGS (4)
  1. ALBUTEROL. [Concomitant]
     Active Substance: ALBUTEROL
     Indication: ASTHMA
     Dosage: UNK
     Route: 055
     Dates: start: 2004
  2. NUVARING [Suspect]
     Active Substance: ETHINYL ESTRADIOL\ETONOGESTREL
     Indication: HORMONE LEVEL ABNORMAL
     Dosage: UNK
     Route: 067
     Dates: start: 2012, end: 20140809
  3. NUVARING [Suspect]
     Active Substance: ETHINYL ESTRADIOL\ETONOGESTREL
     Indication: CONTRACEPTION
  4. NUVARING [Suspect]
     Active Substance: ETHINYL ESTRADIOL\ETONOGESTREL
     Indication: ANALGESIC THERAPY

REACTIONS (8)
  - Off label use [Recovered/Resolved]
  - Gastrooesophageal reflux disease [Unknown]
  - Pelvic pain [Unknown]
  - Gonorrhoea [Unknown]
  - Hemiparesis [Recovered/Resolved]
  - Seizure [Unknown]
  - Hypoaesthesia [Recovered/Resolved]
  - Cerebral venous thrombosis [Unknown]

NARRATIVE: CASE EVENT DATE: 200908
